FAERS Safety Report 4473373-1 (Version None)
Quarter: 2004Q4

REPORT INFORMATION
  Report Type: 
  Country: None (occurrence: None)
  Receive Date: 20041008
  Receipt Date: 20040929
  Transmission Date: 20050328
  Serious: Yes (Disabling)
  Sender: FDA-Public Use
  Company Number: 25222

PATIENT
  Sex: Female

DRUGS (1)
  1. ALDARA [Suspect]
     Dosage: (1 IN 1 DAY (S)) TOPICAL
     Route: 061

REACTIONS (6)
  - APPLICATION SITE PAIN [None]
  - APPLICATION SITE REACTION [None]
  - HYPOAESTHESIA [None]
  - NEUROPATHY PERIPHERAL [None]
  - PAIN IN EXTREMITY [None]
  - PARESIS [None]
